FAERS Safety Report 9821971 (Version 3)
Quarter: 2014Q1

REPORT INFORMATION
  Report Type: Spontaneous
  Country: JP (occurrence: JP)
  Receive Date: 20140116
  Receipt Date: 20140131
  Transmission Date: 20141002
  Serious: Yes (Hospitalization, Other)
  Sender: FDA-Public Use
  Company Number: JP-JNJFOC-20140105473

PATIENT
  Age: 52 Year
  Sex: Male

DRUGS (4)
  1. TRAMCET [Suspect]
     Indication: PAIN
     Dosage: 1 DF 1 PER 1 DAY
     Route: 048
     Dates: start: 20131217, end: 20131218
  2. DEPAS [Concomitant]
     Dosage: 3 PER 1 DAY
     Route: 048
  3. CHITOSAN [Concomitant]
     Dosage: 1 PER 1 DAY
     Route: 048
  4. PRIMPERAN [Concomitant]
     Dosage: 3 PER 1 DAY
     Route: 048
     Dates: start: 20131217, end: 20131218

REACTIONS (4)
  - Convulsion [Recovering/Resolving]
  - Depressed level of consciousness [Recovering/Resolving]
  - Fall [Unknown]
  - Subcutaneous haematoma [Unknown]
